FAERS Safety Report 4518862-6 (Version None)
Quarter: 2004Q4

REPORT INFORMATION
  Report Type: 
  Country: None (occurrence: None)
  Receive Date: 20041201
  Receipt Date: 20041118
  Transmission Date: 20050328
  Serious: Yes (Hospitalization, Other)
  Sender: FDA-Public Use
  Company Number: KII-2004-0014047

PATIENT
  Age: 23 Year
  Sex: Male

DRUGS (1)
  1. OXYCONTIN [Suspect]
     Dosage: ORAL
     Route: 048

REACTIONS (20)
  - AGITATION [None]
  - BLOOD BICARBONATE DECREASED [None]
  - BLOOD CREATININE INCREASED [None]
  - BLOOD GLUCOSE INCREASED [None]
  - BLOOD POTASSIUM DECREASED [None]
  - BLOOD PRESSURE DIASTOLIC DECREASED [None]
  - BLOOD UREA INCREASED [None]
  - COMA [None]
  - DIABETIC KETOACIDOSIS [None]
  - ELECTROCARDIOGRAM QT CORRECTED INTERVAL PROLONGED [None]
  - HEART RATE INCREASED [None]
  - MENTAL STATUS CHANGES [None]
  - OSMOLAR GAP ABNORMAL [None]
  - OVERDOSE [None]
  - PCO2 DECREASED [None]
  - PNEUMONIA [None]
  - PUPILS UNEQUAL [None]
  - RENAL TUBULAR NECROSIS [None]
  - TACHYPNOEA [None]
  - URINE OUTPUT DECREASED [None]
